FAERS Safety Report 17367586 (Version 1)
Quarter: 2020Q1

REPORT INFORMATION
  Report Type: Spontaneous
  Country: IN (occurrence: IN)
  Receive Date: 20200204
  Receipt Date: 20200204
  Transmission Date: 20200409
  Serious: Yes (Other)
  Sender: FDA-Public Use
  Company Number: IN-SHIRE-IN202003418

PATIENT

DRUGS (11)
  1. SODIUM VALPROATE [Concomitant]
     Active Substance: VALPROATE SODIUM
     Indication: SEIZURE
  2. PARACETAMOL [Concomitant]
     Active Substance: ACETAMINOPHEN
     Indication: PRODUCT USED FOR UNKNOWN INDICATION
  3. RANITIDINE. [Concomitant]
     Active Substance: RANITIDINE
     Indication: PRODUCT USED FOR UNKNOWN INDICATION
  4. METHYLPREDNISOLONE. [Concomitant]
     Active Substance: METHYLPREDNISOLONE
     Indication: RESPIRATORY TRACT INFECTION
  5. HUMAN NORMAL IMMUNOGLOBULIN IVIG, TRIPLE VIRALLY REDUCED (TVR) [Suspect]
     Active Substance: HUMAN IMMUNOGLOBULIN G
     Indication: ACUTE DISSEMINATED ENCEPHALOMYELITIS
     Route: 042
  6. LEVETIRACETAM. [Concomitant]
     Active Substance: LEVETIRACETAM
     Indication: SEIZURE
  7. HUMAN NORMAL IMMUNOGLOBULIN IVIG, TRIPLE VIRALLY REDUCED (TVR) [Suspect]
     Active Substance: HUMAN IMMUNOGLOBULIN G
     Indication: RESPIRATORY TRACT INFECTION
  8. CEFTRIAXONE. [Concomitant]
     Active Substance: CEFTRIAXONE
     Indication: ACUTE DISSEMINATED ENCEPHALOMYELITIS
  9. CEFTRIAXONE. [Concomitant]
     Active Substance: CEFTRIAXONE
     Indication: RESPIRATORY TRACT INFECTION
  10. METHYLPREDNISOLONE. [Concomitant]
     Active Substance: METHYLPREDNISOLONE
     Indication: ACUTE DISSEMINATED ENCEPHALOMYELITIS
  11. PREDNISOLONE. [Concomitant]
     Active Substance: PREDNISOLONE
     Indication: PRODUCT USED FOR UNKNOWN INDICATION

REACTIONS (2)
  - Intentional product use issue [Unknown]
  - Erythema multiforme [Recovered/Resolved]
